FAERS Safety Report 4897068-5 (Version None)
Quarter: 2006Q1

REPORT INFORMATION
  Report Type: 
  Country: None (occurrence: None)
  Receive Date: 20060127
  Receipt Date: 20060118
  Transmission Date: 20060701
  Serious: Yes (Hospitalization)
  Sender: FDA-Public Use
  Company Number: 2005-09-1451

PATIENT
  Age: 62 Year
  Sex: Female

DRUGS (2)
  1. REBETOL [Suspect]
     Indication: HEPATITIS C
     Dosage: ORAL
     Route: 048
  2. INTRON A [Suspect]
     Indication: HEPATITIS C
     Dosage: 10 MIU INTRAMUSCULAR
     Route: 030

REACTIONS (1)
  - ANTINUCLEAR ANTIBODY POSITIVE [None]
